FAERS Safety Report 11570639 (Version 3)
Quarter: 2015Q4

REPORT INFORMATION
  Report Type: Spontaneous
  Country: US (occurrence: US)
  Receive Date: 20150916
  Receipt Date: 20151120
  Transmission Date: 20160304
  Serious: No
  Sender: FDA-Public Use
  Company Number: US-ELI_LILLY_AND_COMPANY-US200909002332

PATIENT
  Age: 66 Year
  Sex: Female

DRUGS (3)
  1. PREDNISONE. [Concomitant]
     Active Substance: PREDNISONE
     Indication: ASTHMA
  2. FORTEO [Suspect]
     Active Substance: TERIPARATIDE
     Indication: OSTEOPOROSIS
     Dosage: UNK, UNKNOWN
     Route: 065
  3. FORTEO [Suspect]
     Active Substance: TERIPARATIDE
     Dosage: UNK, QD

REACTIONS (7)
  - Muscle spasms [Unknown]
  - Asthma [Unknown]
  - Injection site haemorrhage [Unknown]
  - Upper limb fracture [Unknown]
  - Hypersensitivity [Unknown]
  - Muscle spasms [Unknown]
  - Injection site bruising [Unknown]

NARRATIVE: CASE EVENT DATE: 201304
